FAERS Safety Report 20057931 (Version 4)
Quarter: 2022Q1

REPORT INFORMATION
  Report Type: Spontaneous
  Country: JP (occurrence: JP)
  Receive Date: 20211111
  Receipt Date: 20220131
  Transmission Date: 20220424
  Serious: Yes (Life-Threatening, Other)
  Sender: FDA-Public Use
  Company Number: JP-MYLANLABS-2021M1083223

PATIENT
  Age: 10 Year
  Sex: Male

DRUGS (2)
  1. EPIPEN [Suspect]
     Active Substance: EPINEPHRINE
     Indication: Anaphylactic reaction
     Dosage: 0.15 MILLIGRAM, QD
     Route: 030
     Dates: start: 20211026
  2. EPIPEN [Suspect]
     Active Substance: EPINEPHRINE
     Indication: Food allergy

REACTIONS (2)
  - Device failure [Recovered/Resolved]
  - Device leakage [Recovered/Resolved]

NARRATIVE: CASE EVENT DATE: 20211026
